FAERS Safety Report 20415859 (Version 1)
Quarter: 2022Q1

REPORT INFORMATION
  Report Type: Spontaneous
  Country: CA (occurrence: CA)
  Receive Date: 20220202
  Receipt Date: 20220202
  Transmission Date: 20220424
  Serious: Yes (Life-Threatening, Other)
  Sender: FDA-Public Use
  Company Number: CA-TEVA-2022-CA-2004083

PATIENT
  Age: 23 Year
  Sex: Female
  Weight: 36 kg

DRUGS (2)
  1. METHOTREXATE [Suspect]
     Active Substance: METHOTREXATE
     Indication: Product used for unknown indication
     Route: 065
  2. RUXIENCE [Concomitant]
     Active Substance: RITUXIMAB-PVVR
     Indication: Granulomatosis with polyangiitis
     Route: 042

REACTIONS (7)
  - Anti-neutrophil cytoplasmic antibody positive vasculitis [Unknown]
  - Antineutrophil cytoplasmic antibody increased [Unknown]
  - Glomerulonephritis rapidly progressive [Unknown]
  - Haemorrhage [Unknown]
  - Lung disorder [Unknown]
  - Renal failure [Unknown]
  - Sinus disorder [Unknown]
